FAERS Safety Report 6418591-8 (Version None)
Quarter: 2009Q4

REPORT INFORMATION
  Report Type: 
  Country: None (occurrence: None)
  Receive Date: 20091028
  Receipt Date: 20091015
  Transmission Date: 20100525
  Serious: Yes (Hospitalization)
  Sender: FDA-Public Use
  Company Number: PHHY2009JP45174

PATIENT
  Sex: Female

DRUGS (18)
  1. STI571/CGP57148B T35717+TAB [Suspect]
     Indication: ACUTE LYMPHOCYTIC LEUKAEMIA
     Dosage: 800 MG/ DAY
     Route: 048
     Dates: start: 20070605, end: 20070709
  2. STI571/CGP57148B T35717+TAB [Suspect]
     Dosage: 800 MG/ DAY
     Route: 048
     Dates: start: 20070713, end: 20071204
  3. STI571/CGP57148B T35717+TAB [Suspect]
     Dosage: 400 MG/ DAY
     Route: 048
     Dates: start: 20071213, end: 20071226
  4. STI571/CGP57148B T35717+TAB [Suspect]
     Dosage: 400 MG/DAY
     Route: 048
     Dates: start: 20080104, end: 20080604
  5. PREDONINE [Concomitant]
     Dosage: 55 MG, UNK
     Route: 048
     Dates: start: 20070529
  6. PREDONINE [Concomitant]
     Dosage: 40 MG, UNK
     Route: 048
  7. PREDONINE [Concomitant]
     Dosage: 30 MG, UNK
     Route: 048
  8. PREDONINE [Concomitant]
     Dosage: 20 MG, UNK
     Route: 048
  9. PREDONINE [Concomitant]
     Dosage: 15 MG, UNK
     Route: 048
  10. PREDONINE [Concomitant]
     Dosage: 10 MG, UNK
     Route: 048
  11. PREDONINE [Concomitant]
     Dosage: 5 MG, UNK
     Route: 048
  12. PREDONINE [Concomitant]
     Dosage: 5 MG, UNK
     Route: 048
     Dates: end: 20080604
  13. ZYLORIC [Concomitant]
     Dosage: 300 MG, UNK
     Route: 048
     Dates: start: 20070524
  14. ZYLORIC [Concomitant]
     Dosage: 300 MG, UNK
     Route: 048
     Dates: end: 20080604
  15. BAKTAR [Concomitant]
     Dosage: 1 G, UNK
     Route: 048
     Dates: start: 20070529
  16. BAKTAR [Concomitant]
     Dosage: 1 G, UNK
     Route: 048
     Dates: end: 20070912
  17. RANITAC [Concomitant]
     Dosage: 150 MG, UNK
     Route: 048
     Dates: start: 20070529, end: 20070927
  18. FLUID/ELECTROLYTE REPLACEMENT THERAPY [Concomitant]
     Indication: RENAL IMPAIRMENT

REACTIONS (4)
  - BLOOD CREATININE INCREASED [None]
  - BLOOD LACTATE DEHYDROGENASE INCREASED [None]
  - BLOOD URIC ACID INCREASED [None]
  - RENAL IMPAIRMENT [None]
